FAERS Safety Report 25764357 (Version 1)
Quarter: 2025Q3

REPORT INFORMATION
  Report Type: Spontaneous
  Country: US (occurrence: US)
  Receive Date: 20250905
  Receipt Date: 20250905
  Transmission Date: 20251020
  Serious: No
  Sender: DOMPE FARMACEUTICI
  Company Number: US-FARMAPROD-202501-0298

PATIENT
  Age: 88 Year
  Sex: Male

DRUGS (7)
  1. OXERVATE [Suspect]
     Active Substance: CENEGERMIN-BKBJ
     Indication: Neurotrophic keratopathy
     Route: 047
     Dates: start: 20241221, end: 20250215
  2. WHOLE BLOOD [Concomitant]
     Active Substance: WHOLE BLOOD
     Route: 061
     Dates: start: 20231228
  3. MOXI [Concomitant]
     Route: 061
     Dates: start: 20241031
  4. PREDNISOLONE ACETATE [Concomitant]
     Active Substance: PREDNISOLONE ACETATE
     Indication: Uveitis
     Dates: start: 20230914
  5. BRIMONIDINE [Concomitant]
     Active Substance: BRIMONIDINE TARTRATE
     Indication: Glaucoma
     Route: 061
     Dates: start: 20230914
  6. VALACYCLOVIR [Concomitant]
     Active Substance: VALACYCLOVIR HYDROCHLORIDE
     Indication: Viral infection
     Route: 048
     Dates: start: 20230914
  7. PF REFERSH TEARS [Concomitant]
     Indication: Dry eye
     Route: 061
     Dates: start: 20230914

REACTIONS (1)
  - Corneal deposits [Not Recovered/Not Resolved]

NARRATIVE: CASE EVENT DATE: 20250106
